FAERS Safety Report 13154360 (Version 1)
Quarter: 2017Q1

REPORT INFORMATION
  Report Type: Spontaneous
  Country: GB (occurrence: GB)
  Receive Date: 20170126
  Receipt Date: 20170126
  Transmission Date: 20170428
  Serious: Yes (Disabling, Other)
  Sender: FDA-Public Use
  Company Number: GB-TEVA-732253ACC

PATIENT
  Age: 37 Year
  Sex: Female
  Weight: 45 kg

DRUGS (1)
  1. MIRTAZAPINE. [Suspect]
     Active Substance: MIRTAZAPINE
     Indication: DEPRESSION
     Route: 048
     Dates: start: 20160403, end: 20161203

REACTIONS (8)
  - Muscle spasms [Unknown]
  - Peripheral swelling [Unknown]
  - Abnormal weight gain [Recovering/Resolving]
  - Pain in extremity [Unknown]
  - Hyperhidrosis [Recovered/Resolved]
  - Tendon pain [Recovering/Resolving]
  - Dry skin [Recovered/Resolved]
  - Insomnia [Recovering/Resolving]

NARRATIVE: CASE EVENT DATE: 20160404
